FAERS Safety Report 8502249-5 (Version None)
Quarter: 2012Q3

REPORT INFORMATION
  Report Type: 
  Country: None (occurrence: None)
  Receive Date: 20120711
  Receipt Date: 20120705
  Transmission Date: 20120928
  Serious: Yes (Other)
  Sender: FDA-Public Use
  Company Number: US-AMGEN-USASP2011048450

PATIENT
  Age: 58 Year
  Sex: Male
  Weight: 137.87 kg

DRUGS (1)
  1. ENBREL [Suspect]
     Indication: RHEUMATOID ARTHRITIS
     Dosage: 50 MG, QWK
     Route: 058
     Dates: start: 20110606

REACTIONS (2)
  - GASTROOESOPHAGEAL REFLUX DISEASE [None]
  - TINNITUS [None]
